FAERS Safety Report 15967091 (Version 2)
Quarter: 2019Q1

REPORT INFORMATION
  Report Type: Spontaneous
  Country: IT (occurrence: IT)
  Receive Date: 20190215
  Receipt Date: 20190227
  Transmission Date: 20190418
  Serious: Yes (Life-Threatening, Hospitalization, Other)
  Sender: FDA-Public Use
  Company Number: IT-SA-2019SA041988

PATIENT
  Age: 61 Year
  Sex: Female
  Weight: 43 kg

DRUGS (13)
  1. MYCOPHENOLATE MOFETIL. [Suspect]
     Active Substance: MYCOPHENOLATE MOFETIL
     Indication: IMMUNOSUPPRESSION
     Dosage: 720 MG, BID
     Dates: start: 201609
  2. PREDNISONE. [Suspect]
     Active Substance: PREDNISONE
     Indication: IMMUNOSUPPRESSION
     Dosage: 20 MG, QD
     Dates: start: 201609
  3. TACROLIMUS. [Suspect]
     Active Substance: TACROLIMUS
     Indication: IMMUNOSUPPRESSION
  4. CALCIUM CARBONATE. [Concomitant]
     Active Substance: CALCIUM CARBONATE
     Indication: HYPOCALCAEMIA
     Dosage: UNK
     Dates: start: 2016, end: 201703
  5. CEFTAZIDIME. [Concomitant]
     Active Substance: CEFTAZIDIME
     Indication: EVIDENCE BASED TREATMENT
     Dosage: 2 G, QD
     Route: 042
     Dates: start: 2017
  6. METHYLPREDNISOLONE. [Suspect]
     Active Substance: METHYLPREDNISOLONE
     Indication: IMMUNOSUPPRESSION
     Dosage: 500 MG
     Route: 042
     Dates: start: 201609
  7. AMLODIPINE [Suspect]
     Active Substance: AMLODIPINE BESYLATE
     Dosage: 10 MG
  8. PENTAMIDINE [Concomitant]
     Active Substance: PENTAMIDINE
     Indication: ANTIFUNGAL PROPHYLAXIS
     Dosage: UNK UNK, QM; 1 VIAL PER AEROSOL
     Dates: start: 201609
  9. OLMESARTAN [Suspect]
     Active Substance: OLMESARTAN
     Dosage: 40 MG
  10. VALGANCICLOVIR. [Concomitant]
     Active Substance: VALGANCICLOVIR
     Indication: ANTIVIRAL PROPHYLAXIS
     Dosage: 450 MG, Q3D
     Dates: start: 201609
  11. THYMOGLOBULIN [Suspect]
     Active Substance: LAPINE T-LYMPHOCYTE IMMUNE GLOBULIN
     Indication: IMMUNOSUPPRESSION
     Dosage: INDUCTION THERAPY
     Dates: start: 201609
  12. EVEROLIMUS. [Suspect]
     Active Substance: EVEROLIMUS
     Indication: IMMUNOSUPPRESSION
     Dosage: 12.5 MG, Q12H; TARGET, 6-8 NG/ML DURING THE FIRST MONTH AND 4-6 NG/ML DURING THE SECOND
     Dates: start: 201609
  13. VITAMIN D [Concomitant]
     Active Substance: CHOLECALCIFEROL
     Indication: HYPOCALCAEMIA
     Dosage: UNK
     Dates: start: 2016, end: 201703

REACTIONS (17)
  - Sepsis [Recovered/Resolved]
  - Asthenia [Recovered/Resolved]
  - Hypotension [Unknown]
  - Hyperuricaemia [Unknown]
  - Oral herpes [Recovered/Resolved]
  - Escherichia infection [Unknown]
  - Cytomegalovirus gastroenteritis [Recovered/Resolved]
  - Acute kidney injury [Recovered/Resolved]
  - Dehydration [Recovered/Resolved]
  - Hypercalcaemia [Recovered/Resolved]
  - Acute respiratory failure [Recovering/Resolving]
  - Delayed graft function [Unknown]
  - Urinary tract infection bacterial [Unknown]
  - Pneumocystis jirovecii pneumonia [Recovered/Resolved]
  - Decreased appetite [Recovered/Resolved]
  - Leukopenia [Unknown]
  - Nausea [Recovered/Resolved]

NARRATIVE: CASE EVENT DATE: 2016
